FAERS Safety Report 4655185-9 (Version None)
Quarter: 2005Q2

REPORT INFORMATION
  Report Type: 
  Country: None (occurrence: None)
  Receive Date: 20050506
  Receipt Date: 20050502
  Transmission Date: 20051028
  Serious: Yes (Other)
  Sender: FDA-Public Use
  Company Number: US-GLAXOSMITHKLINE-A0556928A

PATIENT
  Age: 74 Year
  Sex: Female

DRUGS (3)
  1. ADVAIR DISKUS 100/50 [Suspect]
     Indication: ASTHMA
     Route: 055
  2. AVANDIA [Suspect]
     Dosage: 8MG PER DAY
     Route: 048
  3. CELEBREX [Concomitant]

REACTIONS (4)
  - ASTHMA [None]
  - CHOKING [None]
  - DRUG EFFECT INCREASED [None]
  - DYSPNOEA [None]
